FAERS Safety Report 8352568-0 (Version None)
Quarter: 2012Q2

REPORT INFORMATION
  Report Type: 
  Country: None (occurrence: None)
  Receive Date: 20120511
  Receipt Date: 20120509
  Transmission Date: 20120825
  Serious: Yes (Hospitalization)
  Sender: FDA-Public Use
  Company Number: PHHO2006US19809

PATIENT
  Sex: Female
  Weight: 80 kg

DRUGS (3)
  1. TARKA [Concomitant]
     Indication: HYPERTENSION
  2. IMATINIB MESYLATE [Suspect]
     Indication: METASTATIC RENAL CELL CARCINOMA
     Dosage: 100 MG, UNK
     Route: 048
     Dates: start: 20060908, end: 20061118
  3. RAD001 [Suspect]
     Indication: METASTATIC RENAL CELL CARCINOMA
     Dosage: 2.5 MG, QD
     Route: 048
     Dates: start: 20060908, end: 20061118

REACTIONS (2)
  - DYSPNOEA [None]
  - ANGIOEDEMA [None]
